FAERS Safety Report 6866580-1 (Version None)
Quarter: 2010Q2

REPORT INFORMATION
  Report Type: 
  Country: None (occurrence: None)
  Receive Date: 20100528
  Receipt Date: 20100304
  Transmission Date: 20101027
  Serious: Yes (Disabling)
  Sender: FDA-Public Use
  Company Number: 008291

PATIENT
  Age: 45 Year
  Sex: Female

DRUGS (2)
  1. LACOSAMIDE [Suspect]
     Indication: EPILEPSY
     Dates: start: 20091104, end: 20091111
  2. LAMICTAL [Concomitant]

REACTIONS (3)
  - DIZZINESS [None]
  - GAIT DISTURBANCE [None]
  - VISION BLURRED [None]
